FAERS Safety Report 24713800 (Version 1)
Quarter: 2024Q4

REPORT INFORMATION
  Report Type: Spontaneous
  Country: PT (occurrence: PT)
  Receive Date: 20241209
  Receipt Date: 20241209
  Transmission Date: 20250115
  Serious: Yes (Death, Other)
  Sender: B BRAUN
  Company Number: PT-B.Braun Medical Inc.-2166773

PATIENT

DRUGS (65)
  1. ACETAMINOPHEN [Suspect]
     Active Substance: ACETAMINOPHEN
  2. ALENDRONATE SODIUM [Suspect]
     Active Substance: ALENDRONATE SODIUM
  3. ZOMETA [Suspect]
     Active Substance: ZOLEDRONIC ACID
  4. LEVOCETIRIZINE DIHYDROCHLORIDE [Suspect]
     Active Substance: LEVOCETIRIZINE DIHYDROCHLORIDE
  5. VORTIOXETINE [Suspect]
     Active Substance: VORTIOXETINE
  6. VERAPAMIL HYDROCHLORIDE [Suspect]
     Active Substance: VERAPAMIL HYDROCHLORIDE
  7. VENLAFAXINE HYDROCHLORIDE [Suspect]
     Active Substance: VENLAFAXINE HYDROCHLORIDE
  8. TRAMADOL HYDROCHLORIDE [Suspect]
     Active Substance: TRAMADOL HYDROCHLORIDE
  9. TOCILIZUMAB [Suspect]
     Active Substance: TOCILIZUMAB
  10. TELMISARTAN [Suspect]
     Active Substance: TELMISARTAN
  11. TAMSULOSIN HYDROCHLORIDE [Suspect]
     Active Substance: TAMSULOSIN HYDROCHLORIDE
  12. SOFOSBUVIR [Suspect]
     Active Substance: SOFOSBUVIR
  13. SODIUM PICOSULFATE [Suspect]
     Active Substance: SODIUM PICOSULFATE
  14. SIMVASTATIN [Suspect]
     Active Substance: SIMVASTATIN
  15. SERTRALINE HYDROCHLORIDE [Suspect]
     Active Substance: SERTRALINE HYDROCHLORIDE
  16. SERTRALINE [Suspect]
     Active Substance: SERTRALINE HYDROCHLORIDE
  17. HUMAN RABIES VIRUS IMMUNE GLOBULIN [Suspect]
     Active Substance: HUMAN RABIES VIRUS IMMUNE GLOBULIN
  18. RIBAVIRIN [Suspect]
     Active Substance: RIBAVIRIN
  19. PREGABALIN [Suspect]
     Active Substance: PREGABALIN
  20. PROPRANOLOL HYDROCHLORIDE [Suspect]
     Active Substance: PROPRANOLOL HYDROCHLORIDE
  21. PRAVASTATIN SODIUM [Suspect]
     Active Substance: PRAVASTATIN SODIUM
  22. POTASSIUM IODIDE [Suspect]
     Active Substance: POTASSIUM IODIDE
  23. PITAVASTATIN CALCIUM [Suspect]
     Active Substance: PITAVASTATIN CALCIUM
  24. PENTOXIFYLLINE [Suspect]
     Active Substance: PENTOXIFYLLINE
  25. PENTAZOCINE LACTATE [Suspect]
     Active Substance: PENTAZOCINE LACTATE
  26. NIMESULIDE [Suspect]
     Active Substance: NIMESULIDE
  27. NITROGLYCERIN [Suspect]
     Active Substance: NITROGLYCERIN
  28. NILOTINIB HYDROCHLORIDE MONOHYDRATE [Suspect]
     Active Substance: NILOTINIB HYDROCHLORIDE MONOHYDRATE
  29. LETROZOLE [Suspect]
     Active Substance: LETROZOLE
  30. MYCOPHENOLATE SODIUM [Suspect]
     Active Substance: MYCOPHENOLATE SODIUM
  31. LEDIPASVIR [Suspect]
     Active Substance: LEDIPASVIR
  32. HYDROMORPHONE HYDROCHLORIDE [Suspect]
     Active Substance: HYDROMORPHONE HYDROCHLORIDE
  33. IODINE [Suspect]
     Active Substance: IODINE
  34. INDOMETHACIN [Suspect]
     Active Substance: INDOMETHACIN
  35. IMATINIB MESYLATE [Suspect]
     Active Substance: IMATINIB MESYLATE
  36. HYDROCHLOROTHIAZIDE [Suspect]
     Active Substance: HYDROCHLOROTHIAZIDE
  37. HUMAN IMMUNOGLOBULIN G [Suspect]
     Active Substance: HUMAN IMMUNOGLOBULIN G
  38. GLUCOSAMINE SULFATE [Suspect]
     Active Substance: GLUCOSAMINE SULFATE
  39. GINKGO [Suspect]
     Active Substance: GINKGO
  40. FLUOXETINE HYDROCHLORIDE [Suspect]
     Active Substance: FLUOXETINE HYDROCHLORIDE
  41. NORFLOXACIN [Suspect]
     Active Substance: NORFLOXACIN
  42. FENOFIBRATE [Suspect]
     Active Substance: FENOFIBRATE
  43. EZETIMIBE [Suspect]
     Active Substance: EZETIMIBE
  44. EXEMESTANE [Suspect]
     Active Substance: EXEMESTANE
  45. ETANERCEPT [Suspect]
     Active Substance: ETANERCEPT
  46. ESOMEPRAZOLE SODIUM [Suspect]
     Active Substance: ESOMEPRAZOLE SODIUM
  47. ESCITALOPRAM [Suspect]
     Active Substance: ESCITALOPRAM OXALATE
  48. ESCHERICHIA COLI [Suspect]
     Active Substance: ESCHERICHIA COLI
  49. ENOXAPARIN SODIUM [Suspect]
     Active Substance: ENOXAPARIN SODIUM
  50. DUTASTERIDE [Suspect]
     Active Substance: DUTASTERIDE
  51. DONEPEZIL HYDROCHLORIDE [Suspect]
     Active Substance: DONEPEZIL HYDROCHLORIDE
  52. DOCETAXEL [Suspect]
     Active Substance: DOCETAXEL
  53. DILTIAZEM HYDROCHLORIDE [Suspect]
     Active Substance: DILTIAZEM HYDROCHLORIDE
  54. CODEINE PHOSPHATE [Suspect]
     Active Substance: CODEINE PHOSPHATE
  55. CILAZAPRIL ANHYDROUS [Suspect]
     Active Substance: CILAZAPRIL ANHYDROUS
  56. CELECOXIB [Suspect]
     Active Substance: CELECOXIB
  57. BUPRENORPHINE HYDROCHLORIDE [Suspect]
     Active Substance: BUPRENORPHINE HYDROCHLORIDE
  58. BISOPROLOL FUMARATE [Suspect]
     Active Substance: BISOPROLOL FUMARATE
  59. ATORVASTATIN CALCIUM [Suspect]
     Active Substance: ATORVASTATIN CALCIUM
  60. ANASTROZOLE [Suspect]
     Active Substance: ANASTROZOLE
  61. ALISKIREN HEMIFUMARATE [Suspect]
     Active Substance: ALISKIREN HEMIFUMARATE
  62. ADALIMUMAB [Suspect]
     Active Substance: ADALIMUMAB
  63. AGOMELATINE [Suspect]
     Active Substance: AGOMELATINE
  64. ASPIRIN [Suspect]
     Active Substance: ASPIRIN
  65. ACECLOFENAC [Suspect]
     Active Substance: ACECLOFENAC

REACTIONS (25)
  - Coma [Fatal]
  - Dyspnoea [Fatal]
  - Nausea [Fatal]
  - Abdominal pain [Fatal]
  - Blindness [Fatal]
  - Ascites [Fatal]
  - Sepsis [Fatal]
  - Dizziness [Fatal]
  - Haematemesis [Fatal]
  - Diarrhoea [Fatal]
  - Amaurosis fugax [Fatal]
  - Fall [Fatal]
  - Arthralgia [Fatal]
  - Eye pain [Fatal]
  - Pruritus [Fatal]
  - Cardio-respiratory arrest [Fatal]
  - Altered state of consciousness [Fatal]
  - Insomnia [Fatal]
  - Fatigue [Fatal]
  - Chills [Fatal]
  - Haemorrhagic stroke [Fatal]
  - Ocular discomfort [Fatal]
  - Amaurosis fugax [Fatal]
  - Head discomfort [Fatal]
  - Tachycardia [Fatal]
